FAERS Safety Report 9283426 (Version 2)
Quarter: 2014Q2

REPORT INFORMATION
  Report Type: Report from Study
  Country: US (occurrence: US)
  Receive Date: 20130510
  Receipt Date: 20140508
  Transmission Date: 20141212
  Serious: No
  Sender: FDA-Public Use
  Company Number: US-GLAXOSMITHKLINE-A1007690A

PATIENT
  Age: 40 Year
  Sex: Female
  Weight: 92.7 kg

DRUGS (5)
  1. TYKERB [Suspect]
     Indication: HER-2 POSITIVE BREAST CANCER
     Dosage: 1000MG PER DAY
     Route: 048
     Dates: start: 2009
  2. LUNESTA [Concomitant]
  3. FLEXERIL [Concomitant]
  4. NEXIUM [Concomitant]
  5. NORCO [Concomitant]

REACTIONS (7)
  - Dermatitis acneiform [Recovered/Resolved]
  - Rash pustular [Not Recovered/Not Resolved]
  - Rash [Recovering/Resolving]
  - Nausea [Not Recovered/Not Resolved]
  - Diarrhoea [Not Recovered/Not Resolved]
  - Overdose [Unknown]
  - Product quality issue [Unknown]
